FAERS Safety Report 8090504-5 (Version None)
Quarter: 2012Q1

REPORT INFORMATION
  Report Type: 
  Country: None (occurrence: None)
  Receive Date: 20120129
  Receipt Date: 20111103
  Transmission Date: 20120608
  Serious: No
  Sender: FDA-Public Use
  Company Number: US-ABBOTT-11P-163-0871117-00

PATIENT
  Age: 45 Year
  Sex: Female

DRUGS (4)
  1. HUMIRA [Suspect]
     Indication: RHEUMATOID ARTHRITIS
     Dates: start: 20100501
  2. EPITOL [Concomitant]
     Indication: BIPOLAR DISORDER
     Dosage: FOR THE LAST 4 MONTHS
  3. EPITOL [Concomitant]
     Indication: DEPRESSION
  4. TRAZODONE HCL [Concomitant]
     Indication: INSOMNIA

REACTIONS (4)
  - SLEEP DISORDER [None]
  - PRURITUS GENERALISED [None]
  - URTICARIA [None]
  - INSOMNIA [None]
